FAERS Safety Report 6330366-7 (Version None)
Quarter: 2009Q3

REPORT INFORMATION
  Report Type: 
  Country: None (occurrence: None)
  Receive Date: 20090826
  Receipt Date: 20090826
  Transmission Date: 20100115
  Serious: Yes (Hospitalization)
  Sender: FDA-Public Use
  Company Number: None

PATIENT
  Sex: Male
  Weight: 74.5 kg

DRUGS (1)
  1. CISPLATIN [Suspect]
     Dosage: 138 MG
     Dates: end: 20080523

REACTIONS (6)
  - HAEMOGLOBIN DECREASED [None]
  - HAEMOPTYSIS [None]
  - INFLAMMATION [None]
  - MUCOSAL ULCERATION [None]
  - PLATELET COUNT DECREASED [None]
  - SINUS DISORDER [None]
